FAERS Safety Report 22711650 (Version 4)
Quarter: 2024Q4

REPORT INFORMATION
  Report Type: Report from Study
  Country: CO (occurrence: CO)
  Receive Date: 20230717
  Receipt Date: 20241118
  Transmission Date: 20250114
  Serious: Yes (Hospitalization)
  Sender: TAKEDA
  Company Number: CO-TAKEDA-2023TUS001946

PATIENT
  Age: 61 Year
  Sex: Female
  Weight: 61 kg

DRUGS (2)
  1. VEDOLIZUMAB [Suspect]
     Active Substance: VEDOLIZUMAB
     Indication: Crohn^s disease
     Dosage: 300 MILLIGRAM
  2. VEDOLIZUMAB [Suspect]
     Active Substance: VEDOLIZUMAB
     Dosage: 300 MILLIGRAM, Q4WEEKS

REACTIONS (12)
  - Malaise [Not Recovered/Not Resolved]
  - Haematuria [Recovered/Resolved]
  - Flank pain [Recovered/Resolved]
  - Dysuria [Recovered/Resolved]
  - Pelvic pain [Recovered/Resolved]
  - Weight decreased [Unknown]
  - Pain [Recovered/Resolved]
  - Secretion discharge [Not Recovered/Not Resolved]
  - Therapeutic response decreased [Unknown]
  - Nasal congestion [Not Recovered/Not Resolved]
  - Pyrexia [Recovered/Resolved]
  - Cough [Not Recovered/Not Resolved]

NARRATIVE: CASE EVENT DATE: 20221225
